FAERS Safety Report 23758244 (Version 1)
Quarter: 2024Q2

REPORT INFORMATION
  Report Type: Spontaneous
  Country: US (occurrence: US)
  Receive Date: 20240418
  Receipt Date: 20240418
  Transmission Date: 20240716
  Serious: Yes (Other)
  Sender: FDA-Public Use
  Company Number: US-WOODWARD-2024-US-021999

PATIENT
  Age: 74 Year
  Sex: Male

DRUGS (2)
  1. CARVEDILOL [Suspect]
     Active Substance: CARVEDILOL
     Indication: Heart failure with reduced ejection fraction
     Dosage: UNKNOWN
  2. DIGOXIN [Suspect]
     Active Substance: DIGOXIN
     Indication: Heart failure with reduced ejection fraction
     Dosage: UNKNOWN

REACTIONS (1)
  - BRASH syndrome [Unknown]
